FAERS Safety Report 6308881-1 (Version None)
Quarter: 2009Q3

REPORT INFORMATION
  Report Type: 
  Country: None (occurrence: None)
  Receive Date: 20090813
  Receipt Date: 20081224
  Transmission Date: 20100115
  Serious: No
  Sender: FDA-Public Use
  Company Number: US-ALLERGAN-0816363US

PATIENT
  Sex: Female

DRUGS (4)
  1. COMBIGAN [Suspect]
     Indication: GLAUCOMA
     Dosage: UNK, BID
     Route: 047
     Dates: start: 20080101
  2. SYNTHROID [Concomitant]
     Dosage: 120 UG, UNK
     Dates: start: 19780101, end: 20081101
  3. SYNTHROID [Concomitant]
     Dosage: 100 UG, UNK
     Dates: start: 20081101
  4. PILOCARPINE HYDROCHLORIDE [Concomitant]
     Dosage: UNK, UNK
     Route: 047
     Dates: start: 19780101

REACTIONS (1)
  - BLOOD THYROID STIMULATING HORMONE DECREASED [None]
